FAERS Safety Report 4733980-5 (Version None)
Quarter: 2005Q3

REPORT INFORMATION
  Report Type: 
  Country: None (occurrence: None)
  Receive Date: 20050721
  Receipt Date: 20050509
  Transmission Date: 20060218
  Serious: No
  Sender: FDA-Public Use
  Company Number: 2005SP000684

PATIENT
  Age: 43 Year
  Sex: Female
  Weight: 72.5755 kg

DRUGS (4)
  1. LUNESTA [Suspect]
     Indication: INITIAL INSOMNIA
     Dosage: 2 MG;HS
     Dates: start: 20050413, end: 20050413
  2. KLONOPIN [Concomitant]
  3. LEVODOPA [Concomitant]
  4. MELATONIN [Concomitant]

REACTIONS (7)
  - CHOKING SENSATION [None]
  - DRUG INEFFECTIVE [None]
  - DYSGEUSIA [None]
  - MIDDLE INSOMNIA [None]
  - MIGRAINE [None]
  - PALPITATIONS [None]
  - PARADOXICAL DRUG REACTION [None]
